FAERS Safety Report 16278546 (Version 2)
Quarter: 2019Q3

REPORT INFORMATION
  Report Type: Spontaneous
  Country: US (occurrence: US)
  Receive Date: 20190506
  Receipt Date: 20190708
  Transmission Date: 20191004
  Serious: Yes (Hospitalization, Other)
  Sender: FDA-Public Use
  Company Number: US-BAYER-2019-087361

PATIENT
  Age: 43 Year
  Sex: Female
  Weight: 82.99 kg

DRUGS (2)
  1. MIRENA [Suspect]
     Active Substance: LEVONORGESTREL
     Indication: CONTRACEPTION
     Dosage: 20 MCG/24HR, CONT
     Route: 015
     Dates: start: 2009, end: 2014
  2. MIRENA [Suspect]
     Active Substance: LEVONORGESTREL
     Indication: MENORRHAGIA
     Dosage: 20 MCG/24HR, CONT
     Route: 015
     Dates: start: 2014, end: 20190110

REACTIONS (17)
  - Loss of consciousness [Recovered/Resolved]
  - Vision blurred [None]
  - Ocular discomfort [None]
  - Joint dislocation [None]
  - Idiopathic intracranial hypertension [None]
  - Blindness transient [None]
  - Back pain [None]
  - Dizziness [None]
  - Traumatic fracture [None]
  - Periarthritis [Recovered/Resolved]
  - Photopsia [None]
  - Head discomfort [None]
  - Headache [None]
  - Procedural complication [None]
  - Tinnitus [None]
  - Ear discomfort [None]
  - Fall [None]

NARRATIVE: CASE EVENT DATE: 20130226
